FAERS Safety Report 13381613 (Version 3)
Quarter: 2017Q2

REPORT INFORMATION
  Report Type: Spontaneous
  Country: JP (occurrence: JP)
  Receive Date: 20170329
  Receipt Date: 20170519
  Transmission Date: 20170830
  Serious: Yes (Hospitalization)
  Sender: FDA-Public Use
  Company Number: JP-009507513-1703JPN013042

PATIENT
  Age: 64 Year
  Sex: Male

DRUGS (10)
  1. GLACTIV [Suspect]
     Active Substance: SITAGLIPTIN
     Dosage: 50 MG
     Route: 048
     Dates: start: 20160224, end: 20170214
  2. METGLUCO [Concomitant]
     Active Substance: METFORMIN HYDROCHLORIDE
     Dosage: UNK
     Dates: start: 20150805, end: 20170214
  3. GLACTIV [Suspect]
     Active Substance: SITAGLIPTIN
     Indication: TYPE 2 DIABETES MELLITUS
     Dosage: 50 MG (ONE HALF OF 50 MG TABLET)
     Route: 048
     Dates: start: 20140129, end: 20150805
  4. GLIMICRON [Concomitant]
     Active Substance: GLICLAZIDE
     Dosage: UNK
     Dates: end: 20150805
  5. NU-LOTAN [Concomitant]
     Active Substance: LOSARTAN POTASSIUM
     Dosage: UNK
     Dates: end: 20170214
  6. SILECE [Concomitant]
     Active Substance: FLUNITRAZEPAM
     Dosage: UNK
     Dates: end: 20170214
  7. GLACTIV [Suspect]
     Active Substance: SITAGLIPTIN
     Dosage: 50 MG (ONE HALF OF 50 MG TABLET)
     Route: 048
     Dates: start: 20151007, end: 20160223
  8. CRESTOR [Concomitant]
     Active Substance: ROSUVASTATIN CALCIUM
     Dosage: UNK
     Dates: end: 20170214
  9. MAINTATE [Concomitant]
     Active Substance: BISOPROLOL FUMARATE
     Dosage: UNK
     Dates: end: 20170214
  10. NIFEDIPINE. [Concomitant]
     Active Substance: NIFEDIPINE
     Dosage: UNK
     Route: 048

REACTIONS (3)
  - Drug prescribing error [Unknown]
  - Ileus [Recovered/Resolved]
  - Decreased appetite [Unknown]

NARRATIVE: CASE EVENT DATE: 20140129
